FAERS Safety Report 6065767-8 (Version None)
Quarter: 2009Q1

REPORT INFORMATION
  Report Type: 
  Country: None (occurrence: None)
  Receive Date: 20090130
  Receipt Date: 20090126
  Transmission Date: 20090719
  Serious: Yes (Other)
  Sender: FDA-Public Use
  Company Number: 2008SP022417

PATIENT
  Age: 18 Year
  Sex: Male

DRUGS (2)
  1. DESLORATADINE [Suspect]
     Indication: MULTIPLE ALLERGIES
     Dosage: 5 MG; PRN; PO, 5 MG; QD;
     Route: 048
     Dates: start: 20020101
  2. DESLORATADINE [Suspect]
     Indication: MULTIPLE ALLERGIES
     Dosage: 5 MG; PRN; PO, 5 MG; QD;
     Route: 048
     Dates: start: 20080101

REACTIONS (7)
  - ACCIDENT [None]
  - EDUCATIONAL PROBLEM [None]
  - ENERGY INCREASED [None]
  - EYE DISORDER [None]
  - LETHARGY [None]
  - SLUGGISHNESS [None]
  - VISUAL ACUITY REDUCED [None]
